FAERS Safety Report 4875351-7 (Version None)
Quarter: 2006Q1

REPORT INFORMATION
  Report Type: 
  Country: None (occurrence: None)
  Receive Date: 20060109
  Receipt Date: 20051005
  Transmission Date: 20060701
  Serious: Yes (Other)
  Sender: FDA-Public Use
  Company Number: US-MERCK-0510USA04171

PATIENT
  Age: 43 Year
  Sex: Male
  Weight: 107 kg

DRUGS (15)
  1. VIOXX [Suspect]
     Indication: INTERVERTEBRAL DISC DEGENERATION
     Route: 048
     Dates: start: 20011217, end: 20040930
  2. VIOXX [Suspect]
     Route: 048
     Dates: start: 20011217, end: 20040930
  3. VIOXX [Suspect]
     Indication: OSTEOARTHRITIS
     Route: 048
     Dates: start: 20011217, end: 20040930
  4. VIOXX [Suspect]
     Route: 048
     Dates: start: 20011217, end: 20040930
  5. ZITHROMAX [Concomitant]
     Route: 065
  6. PREDNISONE [Concomitant]
     Route: 065
  7. CYCLOBENZAPRINE HYDROCHLORIDE [Concomitant]
     Route: 065
  8. DIAZEPAM [Concomitant]
     Route: 065
  9. HYDROCODONE BITARTRATE [Concomitant]
     Route: 065
  10. ENDOCET [Concomitant]
     Route: 065
  11. DURAGESIC-100 [Concomitant]
     Route: 065
  12. CRESTOR [Concomitant]
     Route: 065
  13. TOPROL-XL [Concomitant]
     Route: 065
  14. LAMISIL [Concomitant]
     Route: 065
  15. AMBIEN [Concomitant]
     Route: 065

REACTIONS (7)
  - BACK PAIN [None]
  - CARDIOVASCULAR DISORDER [None]
  - CORONARY ARTERY DISEASE [None]
  - FATIGUE [None]
  - HEART INJURY [None]
  - MYALGIA [None]
  - PHARYNGOLARYNGEAL PAIN [None]
